FAERS Safety Report 18969612 (Version 2)
Quarter: 2021Q1

REPORT INFORMATION
  Report Type: Spontaneous
  Country: US (occurrence: US)
  Receive Date: 20210304
  Receipt Date: 20210310
  Transmission Date: 20210420
  Serious: Yes (Hospitalization)
  Sender: FDA-Public Use
  Company Number: US-CHURCH + DWIGHT CO., INC.-2107582

PATIENT
  Age: 15 Year
  Sex: Male
  Weight: 68.18 kg

DRUGS (1)
  1. ADVANCE WHITE EXTREME WHITENING TARTAR CONTROL [Suspect]
     Active Substance: SODIUM FLUORIDE
     Indication: DENTAL CLEANING
     Route: 048
     Dates: start: 20210211, end: 20210213

REACTIONS (8)
  - Bacterial infection [Unknown]
  - Fungal infection [Unknown]
  - Blister [Unknown]
  - Lip blister [Unknown]
  - Herpes simplex [Unknown]
  - Pyrexia [Unknown]
  - Lip swelling [Unknown]
  - Decreased appetite [Unknown]

NARRATIVE: CASE EVENT DATE: 20210214
